FAERS Safety Report 15729097 (Version 1)
Quarter: 2018Q4

REPORT INFORMATION
  Report Type: Spontaneous
  Country: US (occurrence: US)
  Receive Date: 20181217
  Receipt Date: 20181217
  Transmission Date: 20190205
  Serious: Yes (Hospitalization)
  Sender: FDA-Public Use
  Company Number: US-NOVAST LABORATORIES, LTD-US-2018NOV000426

PATIENT
  Age: 27 Year
  Sex: Male

DRUGS (2)
  1. BUTALBITAL, ACETAMINOPHEN, AND CAFFEINE [Suspect]
     Active Substance: ACETAMINOPHEN\BUTALBITAL\CAFFEINE
     Indication: BACK PAIN
     Dosage: UNK
  2. METAMFETAMINE [Suspect]
     Active Substance: METHAMPHETAMINE
     Indication: BACK PAIN
     Dosage: UNK

REACTIONS (1)
  - Toxicity to various agents [Unknown]
